FAERS Safety Report 6192368-3 (Version None)
Quarter: 2009Q2

REPORT INFORMATION
  Report Type: 
  Country: None (occurrence: None)
  Receive Date: 20090518
  Receipt Date: 20080411
  Transmission Date: 20091009
  Serious: Yes (Hospitalization, Other)
  Sender: FDA-Public Use
  Company Number: US-ASTRAZENECA-2007UW27743

PATIENT
  Age: 30 Year
  Sex: Female
  Weight: 129.7 kg

DRUGS (15)
  1. SEROQUEL [Suspect]
     Indication: BIPOLAR DISORDER
     Route: 048
     Dates: start: 20060101, end: 20071201
  2. SEROQUEL [Suspect]
     Route: 048
     Dates: start: 20070226
  3. CELEXA [Concomitant]
     Route: 065
  4. LOVASTATIN [Concomitant]
     Route: 065
  5. LYRICA [Concomitant]
     Dosage: 150 MG THREE TIMES DAILY, 100 MG TWO TIMES DAILY
     Route: 065
  6. WELLBUTRIN [Concomitant]
     Route: 065
  7. GLUCOPHAGE [Concomitant]
     Route: 065
  8. LISINOPRIL [Concomitant]
     Route: 065
  9. FOLIC ACID [Concomitant]
     Route: 065
  10. ASPIRIN [Concomitant]
     Route: 065
  11. PREVACID [Concomitant]
     Route: 065
  12. VICODIN [Concomitant]
     Route: 065
  13. GLIPIZIDE [Concomitant]
     Route: 065
  14. PRILOSEC OTC [Concomitant]
     Route: 065
  15. NIACIN [Concomitant]
     Dosage: 500 - 1000 MG
     Route: 048

REACTIONS (24)
  - ANXIETY [None]
  - CERVICAL CYST [None]
  - CHEST PAIN [None]
  - CHOLECYSTITIS CHRONIC [None]
  - DEPRESSION [None]
  - DIABETES MELLITUS [None]
  - DIABETIC NEUROPATHY [None]
  - ECCHYMOSIS [None]
  - EXOSTOSIS [None]
  - FUNGAL SKIN INFECTION [None]
  - HYPERLIPIDAEMIA [None]
  - INTERVERTEBRAL DISC DEGENERATION [None]
  - LIPOMA [None]
  - NEUROPATHY PERIPHERAL [None]
  - NICOTINE DEPENDENCE [None]
  - PAIN IN EXTREMITY [None]
  - PARAESTHESIA [None]
  - ROTATOR CUFF SYNDROME [None]
  - SINUSITIS [None]
  - SLEEP APNOEA SYNDROME [None]
  - SNORING [None]
  - SPINAL OSTEOARTHRITIS [None]
  - TOBACCO ABUSE [None]
  - UPPER RESPIRATORY TRACT INFECTION [None]
